FAERS Safety Report 13996267 (Version 2)
Quarter: 2017Q4

REPORT INFORMATION
  Report Type: Spontaneous
  Country: JP (occurrence: JP)
  Receive Date: 20170921
  Receipt Date: 20171026
  Transmission Date: 20180321
  Serious: Yes (Other)
  Sender: FDA-Public Use
  Company Number: JP-GUERBET-JP-20170164

PATIENT
  Age: 8 Decade
  Sex: Female

DRUGS (3)
  1. ETHANOLAMINE OLEATE. [Concomitant]
     Active Substance: ETHANOLAMINE OLEATE
     Indication: THERAPEUTIC EMBOLISATION
     Route: 042
  2. HISTOACRYL [Concomitant]
     Active Substance: ENBUCRILATE
     Indication: THERAPEUTIC EMBOLISATION
     Route: 042
  3. LIPIODOL [Suspect]
     Active Substance: ETHIODIZED OIL
     Indication: THERAPEUTIC EMBOLISATION
     Route: 042

REACTIONS (2)
  - Anaemia [Recovering/Resolving]
  - Haemorrhagic ascites [Recovering/Resolving]
